FAERS Safety Report 7667600-7 (Version None)
Quarter: 2011Q3

REPORT INFORMATION
  Report Type: 
  Country: None (occurrence: None)
  Receive Date: 20110806
  Receipt Date: 20110407
  Transmission Date: 20111222
  Serious: No
  Sender: FDA-Public Use
  Company Number: US-ABBOTT-11P-163-0717871-00

PATIENT
  Sex: Female
  Weight: 57.658 kg

DRUGS (5)
  1. CELEBREX [Concomitant]
     Indication: OSTEOARTHRITIS
  2. NIASPAN [Suspect]
     Indication: BLOOD CHOLESTEROL INCREASED
     Dates: start: 20110101
  3. AMBIEN [Concomitant]
     Indication: INSOMNIA
  4. TOPROL-XL [Concomitant]
     Indication: HEART RATE IRREGULAR
  5. LISINOPRIL [Concomitant]
     Indication: HYPERTENSION

REACTIONS (1)
  - FLUSHING [None]
